FAERS Safety Report 8136007-0 (Version None)
Quarter: 2012Q1

REPORT INFORMATION
  Report Type: 
  Country: None (occurrence: None)
  Receive Date: 20120209
  Receipt Date: 20120124
  Transmission Date: 20120608
  Serious: Yes (Other)
  Sender: FDA-Public Use
  Company Number: DSA_48961_2012

PATIENT
  Sex: Female
  Weight: 61.2356 kg

DRUGS (3)
  1. AROMASIN [Suspect]
     Indication: BREAST CANCER STAGE I
     Dosage: 25 MG QD
     Dates: start: 20111201
  2. ATIVAN [Suspect]
     Indication: VENTRICULAR TACHYCARDIA
     Dosage: 0.5 MG QD
  3. CORGARD [Suspect]
     Indication: VENTRICULAR TACHYCARDIA
     Dosage: DOSE UNKNOWN; DAILY

REACTIONS (5)
  - FUNGAL INFECTION [None]
  - BREAST CANCER STAGE I [None]
  - ABDOMINAL DISTENSION [None]
  - MUSCLE SPASMS [None]
  - BURNING SENSATION [None]
